FAERS Safety Report 8890601 (Version 1)
Quarter: 2012Q4

REPORT INFORMATION
  Report Type: 
  Country: US (occurrence: US)
  Receive Date: 20121107
  Receipt Date: 20121107
  Transmission Date: 20130627
  Serious: Yes (Hospitalization)
  Sender: FDA-Public Use
  Company Number: PHHO2012US015947

PATIENT
  Age: 61 Year
  Sex: Female
  Weight: 184.5 kg

DRUGS (14)
  1. EXELON [Suspect]
     Indication: COGNITIVE DISORDER
     Dosage: 1.5 mg, QD
     Route: 048
     Dates: start: 201105, end: 20120222
  2. EXELON [Suspect]
     Dosage: 4.5 mg, BID
     Route: 048
     Dates: start: 20120222, end: 20120223
  3. EXELON [Suspect]
     Dosage: 1.5 mg, BID
     Route: 048
     Dates: start: 20120124, end: 20120228
  4. EXELON [Suspect]
     Dosage: 4.6 mg, QD
     Route: 062
     Dates: start: 20120329, end: 20120416
  5. CRESTOR [Concomitant]
     Indication: COGNITIVE DISORDER
     Dosage: 5 mg, QD
     Route: 048
     Dates: start: 20120102
  6. ALEVE [Concomitant]
     Indication: FIBROMYALGIA
     Dosage: 500 mg, PRN
     Dates: start: 20120226
  7. ONDANSETRON [Concomitant]
  8. DICLOFENAC [Concomitant]
     Dosage: UNK
     Route: 061
     Dates: start: 20120301
  9. MOTRIN [Concomitant]
     Dosage: UNK
     Dates: start: 20111119
  10. TRAZODONE [Concomitant]
     Dosage: UNK
     Dates: start: 2008
  11. DIVIGEL [Concomitant]
     Dosage: UNK
     Dates: start: 2007
  12. FISH OIL [Concomitant]
     Dosage: UNK
     Dates: start: 2004
  13. EFEXOR XR [Concomitant]
     Dosage: UNK
     Dates: start: 2003
  14. LYRICA [Concomitant]
     Dosage: UNK
     Dates: start: 2007

REACTIONS (1)
  - Diverticulitis [Recovered/Resolved]
